FAERS Safety Report 18479285 (Version 5)
Quarter: 2022Q3

REPORT INFORMATION
  Report Type: Report from Study
  Country: CA (occurrence: CA)
  Receive Date: 20201109
  Receipt Date: 20220711
  Transmission Date: 20221026
  Serious: Yes (Other)
  Sender: FDA-Public Use
  Company Number: CA-GLAXOSMITHKLINE-CA2020AMR220150

PATIENT

DRUGS (2)
  1. MEPOLIZUMAB [Suspect]
     Active Substance: MEPOLIZUMAB
     Indication: Asthma
     Dosage: 100 MG, Z, MONTHLY
     Route: 042
     Dates: start: 20190102
  2. NEULASTA [Suspect]
     Active Substance: PEGFILGRASTIM
     Indication: Product used for unknown indication
     Dosage: UNK
     Route: 042

REACTIONS (5)
  - Breast cancer [Unknown]
  - Malaise [Unknown]
  - Oropharyngeal pain [Unknown]
  - Nasopharyngitis [Unknown]
  - Lymphadenopathy [Unknown]
